FAERS Safety Report 11319363 (Version 1)
Quarter: 2015Q3

REPORT INFORMATION
  Report Type: Spontaneous
  Country: US (occurrence: None)
  Receive Date: 20150727
  Receipt Date: 20150727
  Transmission Date: 20151125
  Serious: Yes (Hospitalization, Other)
  Sender: FDA-Public Use
  Company Number: US-ZYDUS-008662

PATIENT
  Age: 34 Year
  Sex: Female

DRUGS (5)
  1. PREDNISONE (PREDNISONE) [Concomitant]
     Active Substance: PREDNISONE
     Indication: PRODUCT USED FOR UNKNOWN INDICATION
  2. INFLIXIMAB (INFLIXIMAB) [Suspect]
     Active Substance: INFLIXIMAB
     Indication: PRODUCT USED FOR UNKNOWN INDICATION
  3. METHOTREXATE (METHOTREXATE) [Concomitant]
     Active Substance: METHOTREXATE
     Indication: PRODUCT USED FOR UNKNOWN INDICATION
  4. MYCOPHENOLATE MOFETIL (MYCOPHENOLATE MOFETIL) [Suspect]
     Active Substance: MYCOPHENOLATE MOFETIL
     Indication: PRODUCT USED FOR UNKNOWN INDICATION
  5. AZATHIOPRINE (AZATHIOPRINE) [Suspect]
     Active Substance: AZATHIOPRINE
     Indication: PRODUCT USED FOR UNKNOWN INDICATION

REACTIONS (14)
  - Behcet^s syndrome [None]
  - Pulmonary thrombosis [None]
  - Acute respiratory distress syndrome [None]
  - Pulmonary infarction [None]
  - Inappropriate schedule of drug administration [None]
  - Vasculitis necrotising [None]
  - Therapy cessation [None]
  - Hypoxia [None]
  - Pulmonary toxicity [None]
  - Cushingoid [None]
  - Pulmonary mass [None]
  - Diffuse alveolar damage [None]
  - Abdominal discomfort [None]
  - Pulmonary necrosis [None]
